FAERS Safety Report 5117548-7 (Version None)
Quarter: 2006Q3

REPORT INFORMATION
  Report Type: 
  Country: None (occurrence: None)
  Receive Date: 20060926
  Receipt Date: 20060906
  Transmission Date: 20061208
  Serious: Yes (Other)
  Sender: FDA-Public Use
  Company Number: US20609001508

PATIENT
  Age: 80 Year
  Sex: Female

DRUGS (2)
  1. EVISTA [Suspect]
     Indication: OSTEOPOROSIS
  2. NEXIUM [Concomitant]

REACTIONS (4)
  - COLON CANCER [None]
  - CONDITION AGGRAVATED [None]
  - HERNIA [None]
  - OSTEOARTHRITIS [None]
